FAERS Safety Report 24396371 (Version 1)
Quarter: 2024Q4

REPORT INFORMATION
  Report Type: Spontaneous
  Country: US (occurrence: US)
  Receive Date: 20241004
  Receipt Date: 20241004
  Transmission Date: 20250115
  Serious: Yes (Other)
  Sender: RANBAXY
  Company Number: US-SUN PHARMACEUTICAL INDUSTRIES LTD-2024R1-471206

PATIENT
  Age: 58 Year
  Sex: Male

DRUGS (2)
  1. BUPIVACAINE [Suspect]
     Active Substance: BUPIVACAINE
     Indication: Spinal fusion surgery
     Dosage: 1 ML OF 0.5%
     Route: 065
  2. TRIAMCINOLONE [Suspect]
     Active Substance: TRIAMCINOLONE
     Indication: Spinal fusion surgery
     Dosage: 40 MILLIGRAM
     Route: 065

REACTIONS (3)
  - Condition aggravated [Unknown]
  - Suicidal ideation [Recovered/Resolved]
  - Anhedonia [Recovered/Resolved]
